FAERS Safety Report 8041605-9 (Version None)
Quarter: 2012Q1

REPORT INFORMATION
  Report Type: 
  Country: None (occurrence: None)
  Receive Date: 20120112
  Receipt Date: 20120104
  Transmission Date: 20120608
  Serious: Yes (Other)
  Sender: FDA-Public Use
  Company Number: US-BAYER-2011-054398

PATIENT
  Age: 51 Year
  Sex: Female
  Weight: 97.052 kg

DRUGS (9)
  1. IBUPROFEN [Concomitant]
     Indication: DYSMENORRHOEA
     Dosage: 400 MG, UNK
     Dates: start: 19900101
  2. ROPINIROLE [Concomitant]
     Indication: RESTLESS LEGS SYNDROME
     Dosage: 1.5 MG, UNK
     Dates: start: 20080101
  3. YAZ [Suspect]
     Indication: CONTRACEPTION
  4. VITAMIN C [Concomitant]
     Dosage: UNK UNK, PRN
  5. MOTRIN [Concomitant]
     Dosage: UNK
     Dates: start: 19840101
  6. NAPROXEN (ALEVE) [Concomitant]
     Dosage: UNK
     Dates: start: 19840101
  7. PAXIL [Concomitant]
     Indication: DEPRESSION
     Dosage: 20 MG, UNK
     Dates: start: 20010101
  8. YAZ [Suspect]
     Indication: PREMENSTRUAL SYNDROME
     Dosage: UNK
     Dates: start: 20090601, end: 20090720
  9. ASPIRIN [Concomitant]
     Dosage: UNK
     Dates: start: 19800101

REACTIONS (6)
  - OEDEMA PERIPHERAL [None]
  - BURNING SENSATION [None]
  - INJURY [None]
  - DEEP VEIN THROMBOSIS [None]
  - CHEST PAIN [None]
  - PAIN [None]
